FAERS Safety Report 18208831 (Version 2)
Quarter: 2020Q3

REPORT INFORMATION
  Report Type: Spontaneous
  Country: JP (occurrence: JP)
  Receive Date: 20200828
  Receipt Date: 20200921
  Transmission Date: 20201103
  Serious: Yes (Death, Other)
  Sender: FDA-Public Use
  Company Number: JP-EXELIXIS-CABO-20031916

PATIENT
  Age: 4 Decade
  Sex: Male

DRUGS (1)
  1. CABOMETYX [Suspect]
     Active Substance: CABOZANTINIB S-MALATE
     Indication: RENAL CELL CARCINOMA
     Dosage: 60 MILLIGRAM
     Route: 048
     Dates: start: 20200617, end: 202007

REACTIONS (3)
  - Malignant ascites [Unknown]
  - Disease progression [Fatal]
  - Renal cell carcinoma [Fatal]
